FAERS Safety Report 25065241 (Version 7)
Quarter: 2025Q2

REPORT INFORMATION
  Report Type: Spontaneous
  Country: US (occurrence: US)
  Receive Date: 20250311
  Receipt Date: 20250603
  Transmission Date: 20250717
  Serious: Yes (Other)
  Sender: BRISTOL-MYERS SQUIBB COMPANY
  Company Number: US-BRISTOL-MYERS SQUIBB COMPANY-2025-036662

PATIENT
  Age: 70 Year
  Sex: Female

DRUGS (1)
  1. CAMZYOS [Suspect]
     Active Substance: MAVACAMTEN
     Indication: Hypertrophic cardiomyopathy
     Route: 048

REACTIONS (10)
  - Renal impairment [Unknown]
  - Blood creatine abnormal [Unknown]
  - Glomerular filtration rate abnormal [Unknown]
  - Hypersensitivity [Unknown]
  - Nephrolithiasis [Unknown]
  - Urinary tract infection [Unknown]
  - Kidney enlargement [Unknown]
  - Renal atrophy [Unknown]
  - Catheter site pain [Unknown]
  - Salivary duct obstruction [Unknown]

NARRATIVE: CASE EVENT DATE: 20241101
